FAERS Safety Report 9704310 (Version 3)
Quarter: 2015Q3

REPORT INFORMATION
  Report Type: Report from Study
  Country: DE (occurrence: DE)
  Receive Date: 20131122
  Receipt Date: 20150812
  Transmission Date: 20151125
  Serious: Yes (Other)
  Sender: FDA-Public Use
  Company Number: DE-INCYTE CORPORATION-2013IN002751

PATIENT
  Sex: Female
  Weight: 92 kg

DRUGS (15)
  1. INCB018424 [Suspect]
     Active Substance: RUXOLITINIB
     Dosage: 30 MG, QD (PER DAY)
     Route: 048
     Dates: start: 20130619, end: 20131013
  2. INCB018424 [Suspect]
     Active Substance: RUXOLITINIB
     Dosage: 5 MG, QD (PER DAY)
     Route: 048
     Dates: start: 20141029
  3. PROCORALAN [Concomitant]
     Active Substance: IVABRADINE
     Indication: CORONARY ARTERY DISEASE
     Dosage: UNKNOWN
     Route: 065
  4. INCB018424 [Suspect]
     Active Substance: RUXOLITINIB
     Dosage: 25 MG, QD (PER DAY)
     Route: 048
     Dates: start: 20140109, end: 20140113
  5. ALDACTONE [Concomitant]
     Active Substance: SPIRONOLACTONE
     Dosage: UNKNOWN
     Route: 065
  6. PLAVIX [Concomitant]
     Active Substance: CLOPIDOGREL BISULFATE
     Indication: CORONARY ARTERY DISEASE
     Dosage: UNKNOWN
     Route: 065
  7. OMEGA 3                            /01334101/ [Concomitant]
     Active Substance: OMEGA-3 FATTY ACIDS
     Dosage: UNKNOWN
     Route: 065
  8. INCB018424 [Suspect]
     Active Substance: RUXOLITINIB
     Dosage: 20 MG, QD (PER DAY)
     Route: 048
     Dates: start: 20131014, end: 20140108
  9. INCB018424 [Suspect]
     Active Substance: RUXOLITINIB
     Dosage: 10 MG, QD (PER DAY)
     Dates: start: 20140128
  10. METOPROLOL [Concomitant]
     Active Substance: METOPROLOL
     Indication: CORONARY ARTERY DISEASE
     Dosage: UNKNOWN
     Route: 065
  11. INCB018424 [Suspect]
     Active Substance: RUXOLITINIB
     Indication: MYELOFIBROSIS
     Dosage: 20 MG, QD (PER DAY)
     Route: 048
     Dates: start: 20130419
  12. FUROSEMIDE. [Concomitant]
     Active Substance: FUROSEMIDE
     Indication: CORONARY ARTERY DISEASE
     Dosage: UNKNOWN
     Route: 065
  13. CORVATON FORTE [Concomitant]
     Indication: CORONARY ARTERY DISEASE
     Dosage: UNKNOWN
     Route: 065
  14. INCB018424 [Suspect]
     Active Substance: RUXOLITINIB
     Dosage: 10 MG, QD (PER DAY)
     Route: 048
     Dates: start: 20130502, end: 20130516
  15. INCB018424 [Suspect]
     Active Substance: RUXOLITINIB
     Dosage: 20 MG, QD (PER DAY)
     Route: 048
     Dates: start: 20130517, end: 20130618

REACTIONS (2)
  - Depression [Not Recovered/Not Resolved]
  - Angina pectoris [Recovering/Resolving]

NARRATIVE: CASE EVENT DATE: 20130421
